FAERS Safety Report 8591314-2 (Version None)
Quarter: 2012Q3

REPORT INFORMATION
  Report Type: 
  Country: None (occurrence: None)
  Receive Date: 20120814
  Receipt Date: 20120809
  Transmission Date: 20120928
  Serious: Yes (Death, Other)
  Sender: FDA-Public Use
  Company Number: US-AMGEN-USASP2012050208

PATIENT
  Sex: Female

DRUGS (4)
  1. TOPOTECAN HYDROCHLORIDE [Concomitant]
     Indication: SMALL CELL LUNG CANCER STAGE UNSPECIFIED
  2. NEULASTA [Suspect]
     Indication: NEUTROPENIA
  3. CISPLATIN [Concomitant]
     Indication: SMALL CELL LUNG CANCER STAGE UNSPECIFIED
  4. ETOPOSIDE [Concomitant]
     Indication: SMALL CELL LUNG CANCER STAGE UNSPECIFIED

REACTIONS (4)
  - DEATH [None]
  - DRUG INEFFECTIVE [None]
  - PANCYTOPENIA [None]
  - PSEUDOMONAS INFECTION [None]
